FAERS Safety Report 7940979-4 (Version None)
Quarter: 2011Q4

REPORT INFORMATION
  Report Type: 
  Country: None (occurrence: None)
  Receive Date: 20111128
  Receipt Date: 20111118
  Transmission Date: 20120403
  Serious: Yes (Death, Life-Threatening, Hospitalization, Other)
  Sender: FDA-Public Use
  Company Number: GB-COVIDIEN/TYCO HEALTHCARE/MALLINCKRODT-T201102667

PATIENT
  Age: 18 Year
  Sex: Female

DRUGS (3)
  1. DIAZEPAM [Suspect]
     Dosage: APPROXIMATELY 60 MG
  2. FERROUS SULFATE TAB [Suspect]
     Dosage: POSSIBLY MORE THAN 6 G
  3. PENNSAID [Suspect]
     Dosage: 600 MG
     Route: 048

REACTIONS (17)
  - CEREBRAL HAEMORRHAGE [None]
  - PULMONARY HYPERTENSION [None]
  - RENAL FAILURE [None]
  - ASPERGILLOSIS [None]
  - MULTIPLE DRUG OVERDOSE [None]
  - ENCEPHALOPATHY [None]
  - VASOPLEGIA SYNDROME [None]
  - ACUTE RESPIRATORY DISTRESS SYNDROME [None]
  - RIGHT VENTRICULAR FAILURE [None]
  - JAUNDICE [None]
  - SEPTIC SHOCK [None]
  - PERFORATION BILE DUCT [None]
  - BRAIN DEATH [None]
  - SUICIDE ATTEMPT [None]
  - HEPATIC NECROSIS [None]
  - INTRACRANIAL PRESSURE INCREASED [None]
  - GRAFT DYSFUNCTION [None]
